FAERS Safety Report 23779463 (Version 1)
Quarter: 2024Q2

REPORT INFORMATION
  Report Type: Report from Study
  Country: PH (occurrence: PH)
  Receive Date: 20240424
  Receipt Date: 20240424
  Transmission Date: 20240716
  Serious: Yes (Death)
  Sender: FDA-Public Use
  Company Number: PH-OTSUKA-2024_011602

PATIENT
  Sex: Male

DRUGS (1)
  1. TOLVAPTAN [Suspect]
     Active Substance: TOLVAPTAN
     Indication: Dyspnoea
     Dosage: UNK (STRENGTH: 15 MG)
     Route: 065
     Dates: end: 20240218

REACTIONS (2)
  - Cardiac arrest [Fatal]
  - Product use in unapproved indication [Unknown]
